FAERS Safety Report 10169090 (Version 2)
Quarter: 2014Q2

REPORT INFORMATION
  Report Type: Report from Study
  Country: VE (occurrence: VE)
  Receive Date: 20140513
  Receipt Date: 20140513
  Transmission Date: 20141212
  Serious: Yes (Hospitalization, Other)
  Sender: FDA-Public Use
  Company Number: VE-ABBVIE-13P-178-1095599-00

PATIENT
  Age: 24 Year
  Sex: Female
  Weight: 94 kg

DRUGS (4)
  1. HUMIRA [Suspect]
     Indication: RHEUMATOID ARTHRITIS
     Route: 058
     Dates: start: 201212, end: 201312
  2. METHOTREXATE [Concomitant]
     Indication: RHEUMATOID ARTHRITIS
     Dosage: 2.5 MG, 3 TIMES WEEKLY
     Route: 048
     Dates: start: 201212
  3. CALCOR [Concomitant]
     Indication: RHEUMATOID ARTHRITIS
     Route: 048
     Dates: start: 201212
  4. DEFLAZACORT [Concomitant]
     Indication: RHEUMATOID ARTHRITIS
     Dosage: 4 TIMES WEEKLY
     Route: 048

REACTIONS (2)
  - Renal cyst [Not Recovered/Not Resolved]
  - Urinary tract infection [Not Recovered/Not Resolved]
